FAERS Safety Report 5017833-3 (Version None)
Quarter: 2006Q2

REPORT INFORMATION
  Report Type: 
  Country: None (occurrence: None)
  Receive Date: 20060605
  Receipt Date: 20060424
  Transmission Date: 20061013
  Serious: Yes (Other)
  Sender: FDA-Public Use
  Company Number: PHEH2006US05435

PATIENT
  Age: 70 Year
  Sex: Female

DRUGS (6)
  1. ZOMETA [Suspect]
     Indication: METASTASES TO BONE
     Dosage: 4 MG EVERY 4 WEEKS
     Dates: start: 20020801, end: 20051001
  2. THALIDOMID [Concomitant]
  3. DECADRON SRC [Concomitant]
  4. MELPHALAN [Concomitant]
     Indication: MULTIPLE MYELOMA
     Dosage: 8 MG/M2, X 4D/MONTH
  5. PREDNISONE [Concomitant]
     Indication: MULTIPLE MYELOMA
  6. AREDIA [Suspect]
     Indication: METASTASES TO BONE
     Dosage: Q4WEEKS
     Dates: start: 20001201, end: 20010101

REACTIONS (11)
  - BIOPSY SITE UNSPECIFIED ABNORMAL [None]
  - BONE DISORDER [None]
  - DIABETES MELLITUS [None]
  - EXOSTOSIS [None]
  - INFLAMMATION [None]
  - OSTEONECROSIS [None]
  - OSTEOPOROSIS [None]
  - PAIN [None]
  - PAIN IN JAW [None]
  - SOFT TISSUE INFECTION [None]
  - SWELLING [None]
